FAERS Safety Report 5870595-X (Version None)
Quarter: 2008Q3

REPORT INFORMATION
  Report Type: 
  Country: None (occurrence: None)
  Receive Date: 20080904
  Receipt Date: 20080829
  Transmission Date: 20090109
  Serious: Yes (Death)
  Sender: FDA-Public Use
  Company Number: A0745820A

PATIENT
  Age: 83 Year
  Sex: Male
  Weight: 68 kg

DRUGS (3)
  1. SERETIDE [Suspect]
     Indication: ASTHMA
     Route: 055
     Dates: start: 20070801, end: 20080301
  2. ONDANSETRON [Concomitant]
     Dates: start: 20070801, end: 20080301
  3. RIVOTRIL [Concomitant]
     Dates: start: 20050101, end: 20080301

REACTIONS (1)
  - MYOCARDIAL INFARCTION [None]
